FAERS Safety Report 10554479 (Version 1)
Quarter: 2014Q4

REPORT INFORMATION
  Report Type: Spontaneous
  Country: ES (occurrence: ES)
  Receive Date: 20141030
  Receipt Date: 20141030
  Transmission Date: 20150529
  Serious: Yes (Other)
  Sender: FDA-Public Use
  Company Number: ES-ASTRAZENECA-2014SE80481

PATIENT
  Age: 53 Year
  Sex: Female

DRUGS (2)
  1. SYMBICORT [Suspect]
     Active Substance: BUDESONIDE\FORMOTEROL FUMARATE DIHYDRATE
     Indication: BRONCHITIS
     Dosage: 320 MCG/9 MCG 2 DF TWO TIMES A DAY
     Route: 055
     Dates: start: 20141010
  2. MOXIFLOXACIN [Suspect]
     Active Substance: MOXIFLOXACIN
     Indication: BRONCHITIS
     Route: 048
     Dates: start: 20141010, end: 20141013

REACTIONS (3)
  - Tachycardia [Unknown]
  - Abdominal distension [Unknown]
  - Anxiety [Unknown]

NARRATIVE: CASE EVENT DATE: 201410
